FAERS Safety Report 14785334 (Version 6)
Quarter: 2019Q2

REPORT INFORMATION
  Report Type: Spontaneous
  Country: JP (occurrence: JP)
  Receive Date: 20180420
  Receipt Date: 20190528
  Transmission Date: 20190711
  Serious: Yes (Other)
  Sender: FDA-Public Use
  Company Number: JP-JNJFOC-20180420952

PATIENT
  Age: 69 Year
  Sex: Female

DRUGS (6)
  1. CALFINA [Concomitant]
     Active Substance: ALFACALCIDOL
     Route: 048
  2. ASACOL [Concomitant]
     Active Substance: MESALAMINE
     Route: 048
  3. LAC-B [Concomitant]
     Active Substance: BIFIDOBACTERIUM SPP.
     Route: 048
  4. FOSAMAC [Concomitant]
     Active Substance: ALENDRONATE SODIUM
     Route: 048
  5. AMBROXOL HYDROCHLORIDE [Concomitant]
     Active Substance: AMBROXOL HYDROCHLORIDE
     Route: 048
  6. REMICADE [Suspect]
     Active Substance: INFLIXIMAB
     Indication: COLITIS ULCERATIVE
     Route: 042
     Dates: start: 20160114, end: 20160128

REACTIONS (1)
  - Pemphigoid [Recovering/Resolving]

NARRATIVE: CASE EVENT DATE: 201604
